FAERS Safety Report 5140070-9 (Version None)
Quarter: 2006Q4

REPORT INFORMATION
  Report Type: 
  Country: None (occurrence: None)
  Receive Date: 20061031
  Receipt Date: 20061017
  Transmission Date: 20070319
  Serious: Yes (Other)
  Sender: FDA-Public Use
  Company Number: PHBS2006BR16270

PATIENT
  Age: 91 Year
  Sex: Female

DRUGS (2)
  1. NEOZINE [Concomitant]
     Dosage: 3 DRP, ONCE/SINGLE
     Route: 048
     Dates: start: 20030101
  2. EXELON [Suspect]
     Indication: DEMENTIA ALZHEIMER'S TYPE
     Dosage: 6 MG, BID
     Route: 048
     Dates: start: 20031101, end: 20061010

REACTIONS (8)
  - ABASIA [None]
  - CONFUSIONAL STATE [None]
  - DECREASED ACTIVITY [None]
  - DIARRHOEA [None]
  - DISEASE PROGRESSION [None]
  - DRUG INEFFECTIVE [None]
  - MUSCULAR WEAKNESS [None]
  - RECTAL OBSTRUCTION [None]
